FAERS Safety Report 9596003 (Version 4)
Quarter: 2013Q4

REPORT INFORMATION
  Report Type: Spontaneous
  Country: JP (occurrence: JP)
  Receive Date: 20131004
  Receipt Date: 20131107
  Transmission Date: 20140711
  Serious: Yes (Hospitalization)
  Sender: FDA-Public Use
  Company Number: JP-JHP PHARMACEUTICALS, LLC-JHP201300574

PATIENT
  Age: 55 Year
  Sex: Female

DRUGS (9)
  1. DANTRIUM [Suspect]
     Indication: NEUROLEPTIC MALIGNANT SYNDROME
     Dosage: 25 MG, 5/DAY
     Route: 048
     Dates: start: 201309
  2. DANTRIUM [Suspect]
     Dosage: 25 MG, 6/DAY
     Route: 048
     Dates: start: 201309
  3. DANTRIUM [Suspect]
     Dosage: 25 MG, 4/DAY
     Route: 048
     Dates: start: 20130924
  4. DANTRIUM [Suspect]
     Dosage: 25 MG, TID
     Route: 048
  5. DANTRIUM [Suspect]
     Indication: NEUROLEPTIC MALIGNANT SYNDROME
     Dosage: UNK
     Route: 042
  6. DORMICUM [Suspect]
     Indication: HYPOAESTHESIA ORAL
     Dosage: 15 MG, DAILY
     Route: 042
     Dates: start: 20130907, end: 20130907
  7. ARTIST [Concomitant]
  8. PHENOBAL [Concomitant]
     Dosage: 0.6 G, BID
  9. PARLODEL [Concomitant]
     Dosage: UNK

REACTIONS (4)
  - Intentional drug misuse [Recovered/Resolved]
  - Laryngeal oedema [Recovered/Resolved]
  - Dyspnoea [Unknown]
  - Hyperhidrosis [Unknown]
